FAERS Safety Report 9074214 (Version 1)
Quarter: 2013Q1

REPORT INFORMATION
  Report Type: Report from Study
  Country: US (occurrence: US)
  Receive Date: 20130128
  Receipt Date: 20130128
  Transmission Date: 20140127
  Serious: Yes (Hospitalization)
  Sender: FDA-Public Use
  Company Number: US-ABBOTT-12P-163-0918018-00

PATIENT
  Age: 55 Year
  Sex: Male
  Weight: 95.34 kg

DRUGS (8)
  1. HUMIRA 40 MG/0.8 ML PEN [Suspect]
     Indication: COLITIS ULCERATIVE
     Dates: start: 201108, end: 201112
  2. SIMVASTATIN [Concomitant]
     Indication: BLOOD CHOLESTEROL INCREASED
  3. GLYPIZIDE [Concomitant]
     Indication: DIABETES MELLITUS
  4. LANTUS [Concomitant]
     Indication: DIABETES MELLITUS
  5. APIDRA INSULIN [Concomitant]
     Indication: DIABETES MELLITUS
  6. LISINOPRIL [Concomitant]
     Indication: HYPERTENSION
  7. MESALMINE [Concomitant]
     Indication: COLITIS ULCERATIVE
  8. UNKNOWN ANTIBIOTIC [Concomitant]
     Indication: VIRAL INFECTION
     Route: 042
     Dates: start: 20111225

REACTIONS (2)
  - Viral infection [Recovered/Resolved]
  - Off label use [Not Recovered/Not Resolved]
